FAERS Safety Report 10062995 (Version 2)
Quarter: 2014Q2

REPORT INFORMATION
  Report Type: Report from Study
  Country: US (occurrence: US)
  Receive Date: 20140407
  Receipt Date: 20140424
  Transmission Date: 20141212
  Serious: Yes (Other)
  Sender: FDA-Public Use
  Company Number: US-BRISTOL-MYERS SQUIBB COMPANY-20579918

PATIENT
  Age: 50 Year
  Sex: Female

DRUGS (10)
  1. IPILIMUMAB [Suspect]
     Indication: MALIGNANT MELANOMA
     Dosage: TOTAL DOSE : 1216 MG.
     Route: 042
     Dates: start: 20121106, end: 20131119
  2. ASPIRIN [Concomitant]
  3. ACETAMINOPHEN + HYDROCODONE [Concomitant]
  4. KEPPRA [Concomitant]
  5. MECLIZINE [Concomitant]
  6. MULTIVITAMIN [Concomitant]
  7. ZOFRAN [Concomitant]
     Indication: NAUSEA
     Dosage: TABS
  8. PANTOPRAZOLE [Concomitant]
  9. POLYETHYLENE GLYCOL [Concomitant]
  10. PROMETHAZINE [Concomitant]

REACTIONS (1)
  - Haemolytic uraemic syndrome [Unknown]
